FAERS Safety Report 16708252 (Version 4)
Quarter: 2019Q3

REPORT INFORMATION
  Report Type: Spontaneous
  Country: US (occurrence: US)
  Receive Date: 20190816
  Receipt Date: 20190902
  Transmission Date: 20191004
  Serious: No
  Sender: FDA-Public Use
  Company Number: US-ALEXION PHARMACEUTICALS INC.-A201912293

PATIENT
  Age: 34 Year
  Sex: Female

DRUGS (1)
  1. STRENSIQ [Suspect]
     Active Substance: ASFOTASE ALFA
     Indication: HYPOPHOSPHATASIA
     Dosage: UNK
     Route: 065

REACTIONS (6)
  - Pain [Unknown]
  - Fatigue [Unknown]
  - Injection site reaction [Unknown]
  - Stress [Unknown]
  - Crying [Unknown]
  - Depression [Unknown]
